FAERS Safety Report 18654396 (Version 1)
Quarter: 2020Q4

REPORT INFORMATION
  Report Type: Spontaneous
  Country: US (occurrence: US)
  Receive Date: 20201223
  Receipt Date: 20201223
  Transmission Date: 20210114
  Serious: Yes (Hospitalization)
  Sender: FDA-Public Use
  Company Number: None

PATIENT
  Age: 79 Year
  Sex: Male
  Weight: 111.1 kg

DRUGS (1)
  1. BAMLANIVIMAB. [Suspect]
     Active Substance: BAMLANIVIMAB
     Indication: COVID-19
     Dosage: ?          OTHER FREQUENCY:ONCE;?
     Route: 042
     Dates: start: 20201203, end: 20201203

REACTIONS (7)
  - Dizziness [None]
  - Chest pain [None]
  - Hypotension [None]
  - Presyncope [None]
  - Diarrhoea [None]
  - Hyperhidrosis [None]
  - Dehydration [None]

NARRATIVE: CASE EVENT DATE: 20201211
